FAERS Safety Report 12466124 (Version 1)
Quarter: 2016Q2

REPORT INFORMATION
  Report Type: Other
  Country: US (occurrence: US)
  Receive Date: 20160614
  Receipt Date: 20160614
  Transmission Date: 20160815
  Serious: Yes (Hospitalization, Other)
  Sender: FDA-Public Use
  Company Number: US-ACORDA-ACO_125196_2016

PATIENT
  Age: 39 Year
  Sex: Female
  Weight: 89.8 kg

DRUGS (3)
  1. AMPYRA [Suspect]
     Active Substance: DALFAMPRIDINE
     Indication: ASTHENIA
  2. AMPYRA [Suspect]
     Active Substance: DALFAMPRIDINE
     Indication: GAIT DISTURBANCE
     Dosage: 10 MG, Q 12 HRS
     Route: 048
  3. TYSABRI [Concomitant]
     Active Substance: NATALIZUMAB
     Indication: PRODUCT USED FOR UNKNOWN INDICATION
     Dosage: UNK, EVERY 4 WEEKS

REACTIONS (8)
  - Off label use [Unknown]
  - Dyspnoea [Unknown]
  - Wheelchair user [Unknown]
  - Asthenia [Unknown]
  - Therapy cessation [Recovered/Resolved]
  - Muscular weakness [Recovered/Resolved]
  - Therapeutic response unexpected [Unknown]
  - Dysphagia [Unknown]

NARRATIVE: CASE EVENT DATE: 201606
